FAERS Safety Report 8803567 (Version 1)
Quarter: 2012Q4

REPORT INFORMATION
  Report Type: 
  Country: GB (occurrence: GB)
  Receive Date: 20120924
  Receipt Date: 20120924
  Transmission Date: 20130627
  Serious: Yes (Other)
  Sender: FDA-Public Use
  Company Number: PHFR2012GB005009

PATIENT
  Age: 58 Year
  Sex: Female

DRUGS (1)
  1. ESTRADERM TTS [Suspect]
     Indication: MENOPAUSE
     Dosage: 25 ug, UNK
     Route: 062
     Dates: start: 2009

REACTIONS (2)
  - Diabetes mellitus [Unknown]
  - Blood pressure abnormal [Unknown]
